FAERS Safety Report 10591265 (Version 1)
Quarter: 2014Q4

REPORT INFORMATION
  Report Type: Spontaneous
  Country: US (occurrence: US)
  Receive Date: 20141118
  Receipt Date: 20141118
  Transmission Date: 20150529
  Serious: No
  Sender: FDA-Public Use
  Company Number: US-BAYER-2014-166979

PATIENT
  Age: 46 Year
  Sex: Female
  Weight: 77 kg

DRUGS (7)
  1. MIDOL [Suspect]
     Active Substance: IBUPROFEN
     Dosage: 2 DF, ONCE
     Route: 048
     Dates: start: 20141109, end: 20141109
  2. ZOCOR [Concomitant]
     Active Substance: SIMVASTATIN
  3. LISINOPRIL. [Concomitant]
     Active Substance: LISINOPRIL
  4. BAYER GENUINE ASPIRIN [Suspect]
     Active Substance: ASPIRIN
     Dosage: UNK
     Route: 048
  5. XANAX [Concomitant]
     Active Substance: ALPRAZOLAM
  6. ALEVE [Suspect]
     Active Substance: NAPROXEN SODIUM
     Dosage: UNK
     Route: 048
  7. INSULIN [Concomitant]
     Active Substance: INSULIN NOS

REACTIONS (2)
  - Paraesthesia mucosal [Recovered/Resolved]
  - Drug hypersensitivity [Unknown]

NARRATIVE: CASE EVENT DATE: 20141109
